FAERS Safety Report 4407330-8 (Version None)
Quarter: 2004Q3

REPORT INFORMATION
  Report Type: 
  Country: None (occurrence: None)
  Receive Date: 20040721
  Receipt Date: 20040707
  Transmission Date: 20050211
  Serious: Yes (Death)
  Sender: FDA-Public Use
  Company Number: US-JNJFOC-20040202697

PATIENT
  Age: 82 Year
  Sex: Female
  Weight: 63.9572 kg

DRUGS (6)
  1. DURAGESIC [Suspect]
     Indication: PAIN
     Dosage: SEE IMAGE
     Route: 062
     Dates: start: 20040203
  2. LASIX [Concomitant]
  3. POTASSIUM (POTASSIUM) [Concomitant]
  4. ANALAPRIL (ENALPRIL) [Concomitant]
  5. CALCIUM (CALCIUM) [Concomitant]
  6. DIGOXIN [Concomitant]

REACTIONS (2)
  - AGITATION [None]
  - CONFUSIONAL STATE [None]
